FAERS Safety Report 6632207-7 (Version None)
Quarter: 2010Q1

REPORT INFORMATION
  Report Type: 
  Country: None (occurrence: None)
  Receive Date: 20100312
  Receipt Date: 20100305
  Transmission Date: 20100710
  Serious: Yes (Other)
  Sender: FDA-Public Use
  Company Number: US-SANOFI-AVENTIS-2010SA013268

PATIENT
  Age: 62 Year
  Sex: Female

DRUGS (6)
  1. MULTAQ [Suspect]
     Indication: ATRIAL FIBRILLATION
     Route: 048
     Dates: start: 20100101
  2. METOPROLOL TARTRATE [Concomitant]
  3. COUMADIN [Concomitant]
  4. MILK OF MAGNESIA TAB [Concomitant]
  5. METAMUCIL-2 [Concomitant]
  6. HYDROCODONE [Concomitant]

REACTIONS (2)
  - ATRIAL FIBRILLATION [None]
  - MALAISE [None]
